FAERS Safety Report 24696415 (Version 1)
Quarter: 2024Q4

REPORT INFORMATION
  Report Type: Report from Study
  Country: US (occurrence: US)
  Receive Date: 20241204
  Receipt Date: 20241204
  Transmission Date: 20250115
  Serious: Yes (Other)
  Sender: ABBVIE
  Company Number: US-ABBVIE-6030277

PATIENT
  Sex: Female

DRUGS (1)
  1. REFRESH TEARS PF [Suspect]
     Active Substance: CARBOXYMETHYLCELLULOSE SODIUM\GLYCERIN
     Indication: Product used for unknown indication
     Dosage: CMC 0.5% AND GLYCERIN 0.9%
     Route: 047

REACTIONS (3)
  - Eye operation [Unknown]
  - Product container issue [Not Recovered/Not Resolved]
  - Device physical property issue [Not Recovered/Not Resolved]
